FAERS Safety Report 8350124-1 (Version None)
Quarter: 2012Q2

REPORT INFORMATION
  Report Type: 
  Country: None (occurrence: None)
  Receive Date: 20120510
  Receipt Date: 20120503
  Transmission Date: 20120825
  Serious: Yes (Hospitalization)
  Sender: FDA-Public Use
  Company Number: US-BAYER-2012-014661

PATIENT
  Age: 32 Year
  Sex: Female
  Weight: 58.05 kg

DRUGS (8)
  1. SOMA [Concomitant]
     Dosage: 350 MG TABLETS; 20 DISPENSED FOR 3 DAYS USE.
  2. YAZ [Suspect]
     Indication: MENSTRUAL CYCLE MANAGEMENT
  3. NORCO [Concomitant]
  4. YAZ [Suspect]
     Indication: ACNE
     Dosage: UNK
     Dates: start: 20090323, end: 20100119
  5. YAZ [Suspect]
     Indication: CONTRACEPTION
     Dosage: UNK
     Dates: start: 20090323, end: 20091227
  6. HYDROCODONE BITARTRATE AND ACETAMINOPHEN [Concomitant]
     Indication: PAIN
     Dosage: 5 MG / 325 MG; 20 DISPENSED FOR 3 DAYS USE
  7. TRAMADOL HYDROCHLORIDE [Concomitant]
     Dosage: 50 MG TABLETS; 20 DISPENSED FOR 5 DAYS USE.
  8. PENICILLIN VK [Concomitant]
     Dosage: 500 MG TABLETS; 40 DISPENSED FOR 10 DAYS USE

REACTIONS (7)
  - PULMONARY EMBOLISM [None]
  - CHEST PAIN [None]
  - TACHYCARDIA [None]
  - PAIN IN EXTREMITY [None]
  - PAIN [None]
  - PULMONARY INFARCTION [None]
  - DEEP VEIN THROMBOSIS [None]
